FAERS Safety Report 6979457-8 (Version None)
Quarter: 2010Q3

REPORT INFORMATION
  Report Type: 
  Country: None (occurrence: None)
  Receive Date: 20100913
  Receipt Date: 20100903
  Transmission Date: 20110219
  Serious: Yes (Other)
  Sender: FDA-Public Use
  Company Number: GB-ASTRAZENECA-2010SE30903

PATIENT
  Age: 79 Year
  Sex: Male

DRUGS (6)
  1. ZOLADEX [Suspect]
     Indication: PROSTATE CANCER
     Route: 058
     Dates: start: 20020101
  2. FINASTERIDE [Concomitant]
  3. OMEPRAZOLE [Concomitant]
  4. ASPIRIN [Concomitant]
  5. PERINDOPRIL [Concomitant]
  6. SIMVASTATIN [Concomitant]

REACTIONS (3)
  - DEMYELINATION [None]
  - HEADACHE [None]
  - HYPOAESTHESIA [None]
